FAERS Safety Report 10416016 (Version 2)
Quarter: 2014Q3

REPORT INFORMATION
  Report Type: Spontaneous
  Country: US (occurrence: US)
  Receive Date: 20140828
  Receipt Date: 20140828
  Transmission Date: 20150326
  Serious: Yes (Hospitalization, Other)
  Sender: FDA-Public Use
  Company Number: US-009507513-2009SP026627

PATIENT
  Sex: Female
  Weight: 63.5 kg

DRUGS (5)
  1. NUVARING [Suspect]
     Active Substance: ETHINYL ESTRADIOL\ETONOGESTREL
     Dates: start: 20070123, end: 200709
  2. IBUPROFEN. [Concomitant]
     Active Substance: IBUPROFEN
     Indication: ANALGESIC THERAPY
     Dosage: 800 MG, PRN
  3. PAXIL [Concomitant]
     Active Substance: PAROXETINE HYDROCHLORIDE
  4. NUVARING [Suspect]
     Active Substance: ETHINYL ESTRADIOL\ETONOGESTREL
     Indication: CONTRACEPTION
     Dates: start: 20060718, end: 200611
  5. TYLENOL [Concomitant]
     Active Substance: ACETAMINOPHEN
     Indication: HEADACHE
     Dosage: 500 MG, PRN

REACTIONS (13)
  - Rhinitis allergic [Unknown]
  - Lymphadenopathy [Recovered/Resolved]
  - Suicide attempt [Unknown]
  - Pulmonary embolism [Unknown]
  - Anxiety [Unknown]
  - Musculoskeletal pain [Unknown]
  - Deep vein thrombosis [Recovered/Resolved]
  - Vena cava thrombosis [Unknown]
  - Pulmonary mass [Not Recovered/Not Resolved]
  - Ascites [Recovered/Resolved]
  - Retroperitoneal haematoma [Recovered/Resolved]
  - Atelectasis [Recovered/Resolved]
  - Unintended pregnancy [Recovered/Resolved]

NARRATIVE: CASE EVENT DATE: 200612
